FAERS Safety Report 5978038-2 (Version None)
Quarter: 2008Q4

REPORT INFORMATION
  Report Type: 
  Country: None (occurrence: None)
  Receive Date: 20081126
  Receipt Date: 20081117
  Transmission Date: 20090506
  Serious: No
  Sender: FDA-Public Use
  Company Number: 2008-187145-NL

PATIENT
  Age: 35 Year
  Sex: Female

DRUGS (4)
  1. MIRTAZAPINE [Suspect]
     Indication: DEPRESSION
     Dosage: 30 MG
     Dates: start: 20081001, end: 20081013
  2. MIRTAZAPINE [Suspect]
     Indication: SLEEP DISORDER
     Dosage: 30 MG
     Dates: start: 20081001, end: 20081013
  3. VENLAFAXINE HYDROCHLORIDE [Suspect]
     Dosage: 15 MG
     Dates: start: 20080901
  4. BENZO [Suspect]
     Dosage: 1 DF
     Dates: start: 20080901, end: 20080101

REACTIONS (3)
  - DEPRESSION [None]
  - PARKINSONISM [None]
  - SLEEP DISORDER [None]
